FAERS Safety Report 4882112-1 (Version None)
Quarter: 2006Q1

REPORT INFORMATION
  Report Type: 
  Country: None (occurrence: None)
  Receive Date: 20060117
  Receipt Date: 20050531
  Transmission Date: 20060701
  Serious: Yes (Other)
  Sender: FDA-Public Use
  Company Number: US-MERCK-0506USA00364

PATIENT
  Age: 52 Year
  Sex: Female

DRUGS (1)
  1. VIOXX [Suspect]
     Route: 048
     Dates: start: 20000401, end: 20040901

REACTIONS (16)
  - ABDOMINAL PAIN [None]
  - ARTHROPATHY [None]
  - BLINDNESS [None]
  - CATARACT [None]
  - CHEST PAIN [None]
  - DIARRHOEA [None]
  - DYSAESTHESIA [None]
  - ERYTHEMA [None]
  - FIBROMYALGIA [None]
  - NAUSEA [None]
  - NON-CARDIAC CHEST PAIN [None]
  - PARAPARESIS [None]
  - PEMPHIGUS [None]
  - RASH [None]
  - RETINAL VEIN OCCLUSION [None]
  - STOMATITIS [None]
